FAERS Safety Report 15259214 (Version 3)
Quarter: 2019Q3

REPORT INFORMATION
  Report Type: Report from Study
  Country: JP (occurrence: JP)
  Receive Date: 20180809
  Receipt Date: 20190724
  Transmission Date: 20191004
  Serious: Yes (Other)
  Sender: FDA-Public Use
  Company Number: JP-JNJFOC-20180801962

PATIENT
  Age: 73 Year
  Sex: Male
  Weight: 56.8 kg

DRUGS (22)
  1. ELPLAT [Suspect]
     Active Substance: OXALIPLATIN
     Indication: PLASMA CELL MYELOMA
     Route: 041
     Dates: start: 20180220, end: 20180417
  2. DEXAMETHASONE. [Concomitant]
     Active Substance: DEXAMETHASONE
     Route: 065
     Dates: start: 20180323, end: 20180324
  3. DEXAMETHASONE. [Concomitant]
     Active Substance: DEXAMETHASONE
     Route: 065
     Dates: start: 20180629, end: 20190201
  4. DARZALEX [Suspect]
     Active Substance: DARATUMUMAB
     Indication: PLASMA CELL MYELOMA
     Route: 041
     Dates: start: 20180223, end: 20190201
  5. FLUOROURACIL. [Suspect]
     Active Substance: FLUOROURACIL
     Indication: PLASMA CELL MYELOMA
     Route: 065
     Dates: start: 20180220, end: 20180306
  6. DEXAMETHASONE. [Concomitant]
     Active Substance: DEXAMETHASONE
     Route: 065
     Dates: start: 20180302, end: 20180303
  7. DEXAMETHASONE. [Concomitant]
     Active Substance: DEXAMETHASONE
     Route: 065
     Dates: start: 20180316, end: 20180317
  8. DEXAMETHASONE. [Concomitant]
     Active Substance: DEXAMETHASONE
     Route: 065
     Dates: start: 20180519, end: 20180519
  9. TOPOTECIN [Suspect]
     Active Substance: IRINOTECAN HYDROCHLORIDE
     Indication: PLASMA CELL MYELOMA
     Route: 041
     Dates: start: 20180507, end: 20180507
  10. DEXAMETHASONE. [Concomitant]
     Active Substance: DEXAMETHASONE
     Indication: PLASMA CELL MYELOMA
     Route: 065
     Dates: start: 20180223, end: 20180223
  11. LEVOFOLINATE [Suspect]
     Active Substance: LEVOLEUCOVORIN CALCIUM
     Indication: PLASMA CELL MYELOMA
     Route: 041
     Dates: start: 20180220, end: 20180507
  12. DEXAMETHASONE. [Concomitant]
     Active Substance: DEXAMETHASONE
     Route: 065
     Dates: start: 20180518, end: 20180518
  13. AVASTIN [Suspect]
     Active Substance: BEVACIZUMAB
     Indication: PLASMA CELL MYELOMA
     Route: 041
     Dates: start: 20180220, end: 20180507
  14. DEXAMETHASONE. [Concomitant]
     Active Substance: DEXAMETHASONE
     Route: 065
     Dates: start: 20180224, end: 20180224
  15. DEXAMETHASONE. [Concomitant]
     Active Substance: DEXAMETHASONE
     Route: 065
     Dates: start: 20180427, end: 20180428
  16. DEXAMETHASONE. [Concomitant]
     Active Substance: DEXAMETHASONE
     Route: 065
     Dates: start: 20180616, end: 20180616
  17. REVLIMID [Suspect]
     Active Substance: LENALIDOMIDE
     Indication: PLASMA CELL MYELOMA
     Route: 048
     Dates: start: 20180223, end: 20180226
  18. FLUOROURACIL. [Suspect]
     Active Substance: FLUOROURACIL
     Route: 065
     Dates: start: 20180320, end: 20180417
  19. DEXAMETHASONE. [Concomitant]
     Active Substance: DEXAMETHASONE
     Dates: start: 20180601, end: 20180615
  20. FLUOROURACIL. [Suspect]
     Active Substance: FLUOROURACIL
     Route: 065
     Dates: start: 20180507, end: 20180507
  21. DEXAMETHASONE. [Concomitant]
     Active Substance: DEXAMETHASONE
     Route: 065
     Dates: start: 20180406, end: 20180407
  22. DEXAMETHASONE. [Concomitant]
     Active Substance: DEXAMETHASONE
     Route: 065
     Dates: start: 20180413, end: 20180414

REACTIONS (3)
  - Dyspnoea [Recovered/Resolved]
  - Bone marrow failure [Recovered/Resolved]
  - Infusion related reaction [Recovered/Resolved]

NARRATIVE: CASE EVENT DATE: 20180223
